FAERS Safety Report 15995134 (Version 2)
Quarter: 2019Q2

REPORT INFORMATION
  Report Type: Spontaneous
  Country: ES (occurrence: ES)
  Receive Date: 20190222
  Receipt Date: 20190411
  Transmission Date: 20190711
  Serious: Yes (Other)
  Sender: FDA-Public Use
  Company Number: ES-BAYER-2019-037793

PATIENT
  Sex: Male

DRUGS (10)
  1. ADEMPAS [Suspect]
     Active Substance: RIOCIGUAT
     Dosage: UNK
  2. CALCIUM [Suspect]
     Active Substance: CALCIUM
     Dosage: UNK
  3. LANTANON [LANSOPRAZOLE] [Concomitant]
     Dosage: UNK
  4. ALDOCUMAR [Concomitant]
     Active Substance: WARFARIN SODIUM
     Dosage: UNK
  5. BOSENTAN. [Concomitant]
     Active Substance: BOSENTAN
     Dosage: UNK
  6. MINURIN [Concomitant]
     Active Substance: DESMOPRESSIN ACETATE
     Dosage: UNK
  7. EUTIROX [Concomitant]
     Active Substance: LEVOTHYROXINE SODIUM
     Dosage: UNK
  8. ALDACTONE 50 HCT [Concomitant]
     Dosage: UNK
  9. SEGURIL [Concomitant]
     Active Substance: FUROSEMIDE
     Dosage: UNK
  10. ESOMEPRAZOLE. [Concomitant]
     Active Substance: ESOMEPRAZOLE MAGNESIUM
     Dosage: UNK

REACTIONS (4)
  - Catheterisation venous [None]
  - Cortisol increased [None]
  - Pituitary tumour benign [None]
  - Cushing^s syndrome [Recovered/Resolved]

NARRATIVE: CASE EVENT DATE: 2013
